FAERS Safety Report 7038572-3 (Version None)
Quarter: 2010Q4

REPORT INFORMATION
  Report Type: 
  Country: None (occurrence: None)
  Receive Date: 20101011
  Receipt Date: 20100727
  Transmission Date: 20110411
  Serious: Yes (Death, Other)
  Sender: FDA-Public Use
  Company Number: US-PFIZER INC-2007034998

PATIENT
  Sex: Male

DRUGS (1)
  1. NEURONTIN [Suspect]
     Dosage: UNK
     Route: 065

REACTIONS (2)
  - COMPLETED SUICIDE [None]
  - DRUG INEFFECTIVE [None]
